FAERS Safety Report 5423997-X (Version None)
Quarter: 2007Q3

REPORT INFORMATION
  Report Type: 
  Country: None (occurrence: None)
  Receive Date: 20070727
  Receipt Date: 20070503
  Transmission Date: 20080115
  Serious: No
  Sender: FDA-Public Use
  Company Number: 263430

PATIENT
  Age: 61 Year
  Sex: Female

DRUGS (2)
  1. LEVEMIR [Suspect]
     Indication: INSULIN-REQUIRING TYPE II DIABETES MELLITUS
     Dosage: QD AT NIGHT, SUBCUTANEOUS
     Route: 058
  2. IMURAN [Concomitant]

REACTIONS (4)
  - INJECTION SITE BRUISING [None]
  - INJECTION SITE ERYTHEMA [None]
  - MENTAL STATUS CHANGES [None]
  - NERVOUSNESS [None]
